FAERS Safety Report 9153955 (Version 2)
Quarter: 2013Q2

REPORT INFORMATION
  Report Type: Spontaneous
  Country: US (occurrence: US)
  Receive Date: 20130311
  Receipt Date: 20130503
  Transmission Date: 20140414
  Serious: Yes (Disabling)
  Sender: FDA-Public Use
  Company Number: US-JNJFOC-20130217084

PATIENT
  Sex: Male

DRUGS (6)
  1. XARELTO [Suspect]
     Indication: DEEP VEIN THROMBOSIS
     Route: 048
  2. DILTIAZEM XR [Concomitant]
     Indication: HYPERTENSION
     Route: 065
  3. DOXAZOSIN [Concomitant]
     Indication: HYPERTENSION
     Route: 065
  4. ENBREL [Concomitant]
     Indication: PSORIASIS
     Route: 065
  5. FENOFIBRATE [Concomitant]
     Indication: LIPIDS ABNORMAL
     Route: 065
  6. FOSINOPRIL [Concomitant]
     Indication: HYPERTENSION
     Route: 065

REACTIONS (1)
  - Deep vein thrombosis [Recovered/Resolved]
